FAERS Safety Report 13377809 (Version 1)
Quarter: 2017Q1

REPORT INFORMATION
  Report Type: Report from Study
  Country: JP (occurrence: JP)
  Receive Date: 20170328
  Receipt Date: 20170328
  Transmission Date: 20170429
  Serious: Yes (Life-Threatening, Other)
  Sender: FDA-Public Use
  Company Number: JP-EISAI MEDICAL RESEARCH-EC-2017-026162

PATIENT
  Age: 70 Year
  Sex: Male
  Weight: 65 kg

DRUGS (17)
  1. FULSTAN [Concomitant]
  2. RANMARK [Concomitant]
     Active Substance: DENOSUMAB
  3. LENVATINIB [Suspect]
     Active Substance: LENVATINIB
     Route: 048
     Dates: start: 20151113, end: 20151209
  4. LENVATINIB [Suspect]
     Active Substance: LENVATINIB
     Route: 048
     Dates: start: 20151223, end: 20160204
  5. LENVATINIB [Suspect]
     Active Substance: LENVATINIB
     Route: 048
     Dates: start: 20160610, end: 20160621
  6. AZILVA [Concomitant]
     Active Substance: AZILSARTAN KAMEDOXOMIL
  7. NEXIUM [Concomitant]
     Active Substance: ESOMEPRAZOLE MAGNESIUM
  8. LENVATINIB [Suspect]
     Active Substance: LENVATINIB
     Route: 048
     Dates: start: 20160304, end: 20160525
  9. LENVATINIB [Suspect]
     Active Substance: LENVATINIB
     Route: 048
     Dates: start: 20160722, end: 20160916
  10. HEPARINOID [Concomitant]
     Active Substance: CHONDROITIN SULFATE (BOVINE)
  11. HIRUDOID [Concomitant]
     Active Substance: GLYCOSAMINOGLYCANS
  12. LEVOTHYROXINE SODIUM HYDRATE [Concomitant]
     Active Substance: LEVOTHYROXINE SODIUM
  13. AZUNOL [Concomitant]
     Active Substance: SODIUM GUALENATE
  14. LENVATINIB [Suspect]
     Active Substance: LENVATINIB
     Indication: PAPILLARY THYROID CANCER
     Route: 048
     Dates: start: 20150914, end: 20151016
  15. LENVATINIB [Suspect]
     Active Substance: LENVATINIB
     Route: 048
     Dates: start: 20151023, end: 20151107
  16. FUROSEMIDE. [Concomitant]
     Active Substance: FUROSEMIDE
  17. PYDOXAL [Concomitant]
     Active Substance: PYRIDOXAL

REACTIONS (2)
  - Arthralgia [Not Recovered/Not Resolved]
  - Pleural effusion [Recovered/Resolved]

NARRATIVE: CASE EVENT DATE: 20160303
